FAERS Safety Report 10313772 (Version 1)
Quarter: 2014Q3

REPORT INFORMATION
  Report Type: Spontaneous
  Country: US (occurrence: US)
  Receive Date: 20140718
  Receipt Date: 20140718
  Transmission Date: 20150326
  Serious: Yes (Other)
  Sender: FDA-Public Use
  Company Number: US-PURDUE-USA-2014-0115580

PATIENT
  Sex: Female

DRUGS (1)
  1. OXYCONTIN [Suspect]
     Active Substance: OXYCODONE HYDROCHLORIDE
     Indication: COMPLEX REGIONAL PAIN SYNDROME
     Dosage: 80 MG, UNK
     Route: 048
     Dates: start: 2010

REACTIONS (5)
  - Systemic lupus erythematosus [Unknown]
  - Medication residue present [Unknown]
  - Multiple sclerosis [Unknown]
  - Drug ineffective [Unknown]
  - Scleroderma [Unknown]
